FAERS Safety Report 6596359-X (Version None)
Quarter: 2010Q1

REPORT INFORMATION
  Report Type: 
  Country: None (occurrence: None)
  Receive Date: 20100223
  Receipt Date: 20100215
  Transmission Date: 20100710
  Serious: Yes (Other)
  Sender: FDA-Public Use
  Company Number: US-ELI_LILLY_AND_COMPANY-US200912001736

PATIENT
  Sex: Male

DRUGS (4)
  1. HUMALOG [Suspect]
     Indication: DIABETES MELLITUS
     Dosage: 25 U, 2/D
     Dates: start: 20081112
  2. HUMULIN N [Concomitant]
     Dosage: 25 U, EACH MORNING
     Dates: start: 20091201
  3. HUMULIN N [Concomitant]
     Dosage: UNK, AS NEEDED
     Dates: start: 20091201
  4. NOVOLOG MIX 70/30 [Concomitant]
     Dates: end: 20091201

REACTIONS (7)
  - BLINDNESS [None]
  - BLOOD GLUCOSE INCREASED [None]
  - CATARACT [None]
  - DEVICE MISUSE [None]
  - DIABETIC RETINOPATHY [None]
  - NERVE INJURY [None]
  - WRONG TECHNIQUE IN DRUG USAGE PROCESS [None]
